FAERS Safety Report 6419328-9 (Version None)
Quarter: 2009Q4

REPORT INFORMATION
  Report Type: 
  Country: None (occurrence: None)
  Receive Date: 20091029
  Receipt Date: 20091023
  Transmission Date: 20100525
  Serious: Yes (Death, Life-Threatening, Other)
  Sender: FDA-Public Use
  Company Number: US-ELI_LILLY_AND_COMPANY-US200910006032

PATIENT
  Sex: Male

DRUGS (3)
  1. HUMALOG [Suspect]
  2. HUMULIN N [Suspect]
  3. LEVEMIR [Concomitant]

REACTIONS (3)
  - HODGKIN'S DISEASE [None]
  - METASTASES TO LUNG [None]
  - RESPIRATORY ARREST [None]
